FAERS Safety Report 23839218 (Version 1)
Quarter: 2024Q2

REPORT INFORMATION
  Report Type: Spontaneous
  Country: US (occurrence: US)
  Receive Date: 20240509
  Receipt Date: 20240509
  Transmission Date: 20240716
  Serious: No
  Sender: FDA-Public Use
  Company Number: US-AIMMUNE THERAPEUTICS, INC.-2024AIMT00276

PATIENT

DRUGS (2)
  1. VOWST [Suspect]
     Active Substance: DONOR HUMAN STOOL SPORES (ETHANOL TREATED)
     Indication: Clostridium difficile infection
     Dosage: 1 CAPSULES, 1X/DAY
     Route: 048
     Dates: start: 20240219, end: 20240221
  2. VOWST [Suspect]
     Active Substance: DONOR HUMAN STOOL SPORES (ETHANOL TREATED)
     Dosage: 1 CAPSULES, ONCE, LAST DOSE PRIOR TO EVENT
     Route: 048
     Dates: start: 20240220, end: 20240220

REACTIONS (4)
  - Pain in extremity [Unknown]
  - Limb discomfort [Unknown]
  - Asthenia [Unknown]
  - Underdose [Unknown]

NARRATIVE: CASE EVENT DATE: 20240219
